FAERS Safety Report 7452499-4 (Version None)
Quarter: 2011Q2

REPORT INFORMATION
  Report Type: 
  Country: None (occurrence: None)
  Receive Date: 20110502
  Receipt Date: 20100921
  Transmission Date: 20111010
  Serious: No
  Sender: FDA-Public Use
  Company Number: US-ASTRAZENECA-2010SE44472

PATIENT
  Age: 14895 Day
  Sex: Female
  Weight: 122 kg

DRUGS (6)
  1. DEPAKOTE [Concomitant]
  2. RESTORIL [Concomitant]
  3. EFFEXOR [Concomitant]
  4. NEXIUM [Suspect]
     Indication: GASTROOESOPHAGEAL REFLUX DISEASE
     Route: 048
     Dates: start: 20090101, end: 20100920
  5. ABILIFY [Concomitant]
  6. CLONAZEPAM [Concomitant]

REACTIONS (9)
  - VOMITING [None]
  - COUGH [None]
  - DIARRHOEA [None]
  - HYPERHIDROSIS [None]
  - ABDOMINAL PAIN UPPER [None]
  - DRUG DOSE OMISSION [None]
  - CHEST PAIN [None]
  - NAUSEA [None]
  - WRONG DRUG ADMINISTERED [None]
